FAERS Safety Report 9526953 (Version 1)
Quarter: 2013Q3

REPORT INFORMATION
  Report Type: Spontaneous
  Country: US (occurrence: US)
  Receive Date: 20130916
  Receipt Date: 20130916
  Transmission Date: 20140515
  Serious: No
  Sender: FDA-Public Use
  Company Number: US-ASTRAZENECA-2013SE11034

PATIENT
  Sex: Male
  Weight: 85.3 kg

DRUGS (6)
  1. SYMBICORT PMDI [Suspect]
     Indication: ASTHMA
     Route: 055
  2. SYMBICORT PMDI [Suspect]
     Indication: ASTHMA
     Dosage: UNKNOWN
     Route: 055
     Dates: start: 2007
  3. SYMBICORT PMDI [Suspect]
     Indication: ASTHMA
     Dosage: 80 MCG, UNKNOWN
     Route: 055
  4. SYMBICORT PMDI [Suspect]
     Indication: ASTHMA
     Dosage: 160 MCG, UNKNOWN
     Route: 055
  5. RESCUE INHALER [Concomitant]
     Dosage: PRN
     Route: 055
  6. XALATAN [Concomitant]
     Indication: GLAUCOMA
     Dosage: HS
     Route: 050

REACTIONS (2)
  - Glaucoma [Unknown]
  - Off label use [Unknown]
